FAERS Safety Report 13466061 (Version 2)
Quarter: 2017Q2

REPORT INFORMATION
  Report Type: Spontaneous
  Country: US (occurrence: US)
  Receive Date: 20170421
  Receipt Date: 20170531
  Transmission Date: 20170830
  Serious: No
  Sender: FDA-Public Use
  Company Number: US-PFIZER INC-2017172383

PATIENT
  Sex: Female

DRUGS (2)
  1. COLESTID [Suspect]
     Active Substance: COLESTIPOL HYDROCHLORIDE
     Indication: INFECTION
  2. COLESTID [Suspect]
     Active Substance: COLESTIPOL HYDROCHLORIDE
     Indication: POISONING
     Dosage: 4 MG, 2X/DAY
     Route: 048
     Dates: start: 201610

REACTIONS (3)
  - Product use in unapproved indication [Unknown]
  - Dizziness [Unknown]
  - Malaise [Unknown]
